FAERS Safety Report 20917900 (Version 1)
Quarter: 2022Q2

REPORT INFORMATION
  Report Type: Spontaneous
  Country: US (occurrence: US)
  Receive Date: 20220606
  Receipt Date: 20220606
  Transmission Date: 20220720
  Serious: Yes (Other)
  Sender: FDA-Public Use
  Company Number: US-PADAGIS-2022PAD00101

PATIENT

DRUGS (1)
  1. EVAMIST [Suspect]
     Active Substance: ESTRADIOL
     Indication: Product used for unknown indication
     Dosage: 3 SPRAYS
     Route: 065

REACTIONS (6)
  - Hip fracture [None]
  - Pelvic fracture [None]
  - Hot flush [None]
  - Insomnia [None]
  - Headache [None]
  - Product dose omission issue [Unknown]

NARRATIVE: CASE EVENT DATE: 20210926
